FAERS Safety Report 8433037-6 (Version None)
Quarter: 2012Q2

REPORT INFORMATION
  Report Type: 
  Country: None (occurrence: None)
  Receive Date: 20120613
  Receipt Date: 20120531
  Transmission Date: 20120825
  Serious: Yes (Death)
  Sender: FDA-Public Use
  Company Number: IT-CELGENEUS-083-21880-12022129

PATIENT
  Sex: Female

DRUGS (7)
  1. CYCLOPHOSPHAMIDE [Concomitant]
     Indication: MULTIPLE MYELOMA
     Route: 065
  2. DOXORUBICIN HCL [Concomitant]
     Indication: MULTIPLE MYELOMA
     Route: 065
  3. BORTEZOMIB [Concomitant]
     Indication: MULTIPLE MYELOMA
     Route: 065
  4. ADRYBLASTIN [Concomitant]
     Indication: MULTIPLE MYELOMA
     Route: 065
  5. DEXAMETHASONE [Concomitant]
     Indication: MULTIPLE MYELOMA
     Route: 065
  6. VINCRISTINE [Concomitant]
     Indication: MULTIPLE MYELOMA
     Route: 065
  7. REVLIMID [Suspect]
     Indication: MULTIPLE MYELOMA
     Dosage: 25 MILLIGRAM
     Route: 048
     Dates: start: 20110606, end: 20110718

REACTIONS (1)
  - MULTIPLE MYELOMA [None]
